FAERS Safety Report 6563457-6 (Version None)
Quarter: 2010Q1

REPORT INFORMATION
  Report Type: 
  Country: None (occurrence: None)
  Receive Date: 20100130
  Receipt Date: 20091211
  Transmission Date: 20100710
  Serious: No
  Sender: FDA-Public Use
  Company Number: US-ABBOTT-09P-163-0614813-00

PATIENT
  Sex: Female
  Weight: 83.082 kg

DRUGS (2)
  1. HUMIRA [Suspect]
     Indication: RHEUMATOID ARTHRITIS
     Dates: start: 20090801, end: 20091001
  2. HUMIRA [Suspect]
     Dates: start: 20091001

REACTIONS (1)
  - BRONCHITIS [None]
